FAERS Safety Report 19570017 (Version 7)
Quarter: 2024Q2

REPORT INFORMATION
  Report Type: Spontaneous
  Country: PT (occurrence: PT)
  Receive Date: 20210716
  Receipt Date: 20240605
  Transmission Date: 20240715
  Serious: Yes (Hospitalization, Congenital Anomaly, Other)
  Sender: FDA-Public Use
  Company Number: PT-MLMSERVICE-20210702-2983439-1

PATIENT
  Sex: Male

DRUGS (3)
  1. DICLOFENAC [Suspect]
     Active Substance: DICLOFENAC
     Indication: Back pain
     Dosage: 1 DOSAGE FORM, 1 TOTAL
     Route: 064
  2. DICLOFENAC [Suspect]
     Active Substance: DICLOFENAC
     Dosage: UNK(MATERNAL DOSE : SINGLE DOSE)
     Route: 064
  3. ACETAMINOPHEN [Suspect]
     Active Substance: ACETAMINOPHEN
     Indication: Back pain
     Dosage: UNK(MATERNAL DOSE UNKNOWN FOR 5 DAYS)
     Route: 064

REACTIONS (11)
  - Atrial septal defect [Recovered/Resolved]
  - Cyanosis central [Unknown]
  - Right ventricular hypertrophy [Recovered/Resolved]
  - Ductus arteriosus premature closure [Recovered/Resolved]
  - Pulmonary valve disease [Recovered/Resolved]
  - Pulmonary hypertension [Recovered/Resolved]
  - Right-to-left cardiac shunt [Recovered/Resolved]
  - Tricuspid valve incompetence [Recovered/Resolved]
  - Ventricular hypertrophy [Recovered/Resolved]
  - Foetal exposure during pregnancy [Recovered/Resolved]
  - Drug interaction [Unknown]
